FAERS Safety Report 10158518 (Version 2)
Quarter: 2014Q2

REPORT INFORMATION
  Report Type: Report from Study
  Country: BD (occurrence: BD)
  Receive Date: 20140507
  Receipt Date: 20140508
  Transmission Date: 20141212
  Serious: Yes (Death)
  Sender: FDA-Public Use
  Company Number: PHHY2014BD055046

PATIENT
  Age: 85 Year
  Sex: Female

DRUGS (2)
  1. ACLASTA [Suspect]
     Indication: OSTEOPOROSIS
     Dosage: UNK, (ONCE YEARLY)
     Route: 042
     Dates: start: 20120906
  2. ACLASTA [Suspect]
     Dosage: UNK, (ONCE YEARLY)
     Route: 042
     Dates: start: 20130606

REACTIONS (5)
  - Death [Fatal]
  - Inappropriate schedule of drug administration [Unknown]
  - Weight decreased [Unknown]
  - Decreased appetite [Unknown]
  - Asthenia [Unknown]
